FAERS Safety Report 15467135 (Version 1)
Quarter: 2018Q4

REPORT INFORMATION
  Report Type: Spontaneous
  Country: US (occurrence: US)
  Receive Date: 20181005
  Receipt Date: 20181005
  Transmission Date: 20190204
  Serious: No
  Sender: FDA-Public Use
  Company Number: US-BAUSCH-BL-2018-024756

PATIENT
  Sex: Female
  Weight: 62.65 kg

DRUGS (5)
  1. WELLBUTRIN XL [Suspect]
     Active Substance: BUPROPION HYDROCHLORIDE
     Indication: PRODUCT USE IN UNAPPROVED INDICATION
  2. NALTREXONE [Suspect]
     Active Substance: NALTREXONE
     Indication: CATAPLEXY
  3. WELLBUTRIN XL [Suspect]
     Active Substance: BUPROPION HYDROCHLORIDE
     Indication: CATAPLEXY
     Route: 048
     Dates: start: 201801, end: 2018
  4. NALTREXONE [Suspect]
     Active Substance: NALTREXONE
     Indication: NARCOLEPSY
     Route: 065
     Dates: start: 201801, end: 2018
  5. WELLBUTRIN XL [Suspect]
     Active Substance: BUPROPION HYDROCHLORIDE
     Indication: NARCOLEPSY
     Route: 048
     Dates: start: 2018

REACTIONS (3)
  - Vomiting [Unknown]
  - Gastrooesophageal reflux disease [Unknown]
  - Product use in unapproved indication [Not Recovered/Not Resolved]

NARRATIVE: CASE EVENT DATE: 2018
